FAERS Safety Report 11931029 (Version 2)
Quarter: 2016Q1

REPORT INFORMATION
  Report Type: Spontaneous
  Country: JP (occurrence: JP)
  Receive Date: 20160120
  Receipt Date: 20160205
  Transmission Date: 20160526
  Serious: Yes (Hospitalization)
  Sender: FDA-Public Use
  Company Number: JP-SA-2016SA007084

PATIENT
  Age: 85 Year
  Sex: Female

DRUGS (3)
  1. GLIBENCLAMIDE [Suspect]
     Active Substance: GLYBURIDE
     Indication: TYPE 2 DIABETES MELLITUS
     Route: 065
  2. BUFORMIN HYDROCHLORIDE [Suspect]
     Active Substance: BUFORMIN HYDROCHLORIDE
     Indication: TYPE 2 DIABETES MELLITUS
     Route: 065
  3. INSULIN HUMAN ISOPHANE [Suspect]
     Active Substance: INSULIN HUMAN
     Indication: TYPE 2 DIABETES MELLITUS
     Dosage: EVERY MORNING DOSE:6 UNIT(S)
     Route: 065

REACTIONS (12)
  - Depressed level of consciousness [Recovered/Resolved]
  - Hemiplegia [Recovered/Resolved]
  - Aphasia [Recovered/Resolved]
  - Asthenia [Recovered/Resolved]
  - Body temperature decreased [Recovered/Resolved]
  - Haemodynamic instability [Recovered/Resolved]
  - Lethargy [Recovered/Resolved]
  - Decreased appetite [Recovered/Resolved]
  - Transient ischaemic attack [Recovered/Resolved]
  - Hypoglycaemia [Recovered/Resolved]
  - Cerebral hypoperfusion [Recovered/Resolved]
  - Unresponsive to stimuli [Recovered/Resolved]
